FAERS Safety Report 7504238-6 (Version None)
Quarter: 2011Q2

REPORT INFORMATION
  Report Type: 
  Country: None (occurrence: None)
  Receive Date: 20110525
  Receipt Date: 20091122
  Transmission Date: 20111010
  Serious: Yes (Death, Other)
  Sender: FDA-Public Use
  Company Number: US-BAYER-200940201NA

PATIENT
  Age: 68 Year
  Sex: Female
  Weight: 70.748 kg

DRUGS (16)
  1. CELEBREX [Concomitant]
     Dosage: 200 MG, BID
     Route: 048
  2. CARDIZEM [Concomitant]
     Dosage: UNK
     Route: 042
     Dates: start: 20050119
  3. NORVASC [Concomitant]
     Dosage: 10 MG, QD
     Route: 048
  4. HEPARIN [Concomitant]
     Dosage: 30000 U, UNK
     Route: 042
     Dates: start: 20050119
  5. NITROGLYCERIN [Concomitant]
     Dosage: TITRATED
     Dates: start: 20050119
  6. TRASYLOL [Suspect]
     Dosage: 50ML/HR INFUSION
     Route: 042
     Dates: start: 20050119, end: 20050119
  7. VERSED [Concomitant]
     Dosage: 5 MG, UNK
     Route: 042
     Dates: start: 20050119
  8. TRASYLOL [Suspect]
     Indication: CORONARY ARTERY BYPASS
     Dosage: 1ML INITIAL TEST DOSE
     Route: 042
     Dates: start: 20050119, end: 20050119
  9. TOPROL-XL [Concomitant]
     Dosage: 100 MG, QD
     Route: 048
  10. LIPITOR [Concomitant]
     Dosage: 20 MG, QD
     Route: 048
  11. PLAVIX [Concomitant]
     Dosage: 75 MG, QD
     Route: 048
  12. FENTANYL [Concomitant]
     Dosage: UNK
     Route: 042
     Dates: start: 20050119
  13. DOPAMINE HCL [Concomitant]
     Dosage: TITRATED
     Route: 042
     Dates: start: 20050119
  14. DIOVAN HCT [Concomitant]
     Dosage: 150/12.5MG DAILY
     Route: 048
  15. BUSPAR [Concomitant]
     Dosage: 15 MG, BID
     Route: 048
  16. NIPRIDE [Concomitant]
     Dosage: TITRATED
     Dates: start: 20050119

REACTIONS (14)
  - RENAL IMPAIRMENT [None]
  - ANHEDONIA [None]
  - STRESS [None]
  - FEAR [None]
  - PSYCHIATRIC SYMPTOM [None]
  - MULTI-ORGAN FAILURE [None]
  - EMOTIONAL DISTRESS [None]
  - UNEVALUABLE EVENT [None]
  - RENAL FAILURE [None]
  - DEATH [None]
  - ANXIETY [None]
  - RENAL INJURY [None]
  - PAIN [None]
  - INJURY [None]
